FAERS Safety Report 7374990-1 (Version None)
Quarter: 2011Q1

REPORT INFORMATION
  Report Type: 
  Country: None (occurrence: None)
  Receive Date: 20110325
  Receipt Date: 20110317
  Transmission Date: 20110831
  Serious: Yes (Hospitalization)
  Sender: FDA-Public Use
  Company Number: US-SANOFI-AVENTIS-2011SA017208

PATIENT
  Sex: Female

DRUGS (2)
  1. FERRLECIT [Suspect]
     Route: 051
     Dates: start: 20110301, end: 20110301
  2. FERRLECIT [Suspect]
     Route: 051
     Dates: start: 20110301, end: 20110301

REACTIONS (4)
  - CARDIAC DISORDER [None]
  - BLOOD PRESSURE DECREASED [None]
  - DIARRHOEA [None]
  - DIZZINESS [None]
